FAERS Safety Report 4884612-7 (Version None)
Quarter: 2006Q1

REPORT INFORMATION
  Report Type: 
  Country: None (occurrence: None)
  Receive Date: 20060117
  Receipt Date: 20060103
  Transmission Date: 20060701
  Serious: Yes (Hospitalization)
  Sender: FDA-Public Use
  Company Number: 2006PL000002

PATIENT
  Age: 53 Year
  Sex: Male

DRUGS (2)
  1. IMURAN [Suspect]
     Indication: POLYMYOSITIS
     Dosage: 100 MG; BID
     Dates: start: 20040101
  2. PREDNISONE [Concomitant]

REACTIONS (4)
  - CHOLESTASIS [None]
  - HEPATIC FIBROSIS [None]
  - HEPATIC STEATOSIS [None]
  - MUSCULAR WEAKNESS [None]
